FAERS Safety Report 7100479-0 (Version None)
Quarter: 2010Q4

REPORT INFORMATION
  Report Type: 
  Country: None (occurrence: None)
  Receive Date: 20101113
  Receipt Date: 20100205
  Transmission Date: 20110411
  Serious: No
  Sender: FDA-Public Use
  Company Number: US-ALLERGAN-1001613US

PATIENT
  Sex: Female

DRUGS (1)
  1. BOTOXA? [Suspect]
     Indication: TORTICOLLIS
     Dosage: 100 UNITS, UNK
     Dates: start: 20100114, end: 20100114

REACTIONS (11)
  - DIARRHOEA [None]
  - ELECTROLYTE IMBALANCE [None]
  - HEADACHE [None]
  - INJECTION SITE HAEMATOMA [None]
  - INJECTION SITE SWELLING [None]
  - NAUSEA [None]
  - PAIN IN EXTREMITY [None]
  - SOMNOLENCE [None]
  - URINARY TRACT INFECTION [None]
  - VOMITING [None]
  - WEIGHT DECREASED [None]
